FAERS Safety Report 11192250 (Version 1)
Quarter: 2015Q2

REPORT INFORMATION
  Report Type: Spontaneous
  Country: US (occurrence: None)
  Receive Date: 20150612
  Receipt Date: 20150612
  Transmission Date: 20150821
  Serious: Yes (Life-Threatening, Hospitalization)
  Sender: FDA-Public Use
  Company Number: US-LHC-2015067

PATIENT
  Age: 80 Year
  Sex: Male

DRUGS (1)
  1. OXYGEN (GENERIC) (OXYGEN) (GAS FOR INHALATION) (VERUM) [Suspect]
     Active Substance: OXYGEN
     Indication: SKIN ULCER
     Dosage: 100 % OXYGEN AT 2.4 ATMS
     Route: 055

REACTIONS (2)
  - Acute pulmonary oedema [None]
  - Acute respiratory failure [None]
